FAERS Safety Report 9444396 (Version 1)
Quarter: 2013Q3

REPORT INFORMATION
  Report Type: Spontaneous
  Country: US (occurrence: None)
  Receive Date: 20130805
  Receipt Date: 20130805
  Transmission Date: 20140515
  Serious: Yes (Death)
  Sender: FDA-Public Use
  Company Number: UTC-036063

PATIENT
  Age: 68 Year
  Sex: Female
  Weight: 59.1 kg

DRUGS (2)
  1. REMODULIN (2.5 MILLIGRAM/MILLILITERS, INJECTION FOR INFUSION) (TREPROSTINIL SODIUM) [Suspect]
     Indication: PULMONARY ARTERIAL HYPERTENSION
     Dosage: 0.005 UG/KG, 1 IN 1 MIN
     Route: 058
     Dates: start: 20130401
  2. ADCIRCA [Concomitant]

REACTIONS (1)
  - Death [None]
